FAERS Safety Report 16609373 (Version 1)
Quarter: 2019Q3

REPORT INFORMATION
  Report Type: Spontaneous
  Country: BR (occurrence: BR)
  Receive Date: 20190722
  Receipt Date: 20190722
  Transmission Date: 20191004
  Serious: Yes (Other)
  Sender: FDA-Public Use
  Company Number: BR-GLAXOSMITHKLINE-BR2019AMR127751

PATIENT
  Age: 49 Year
  Sex: Female

DRUGS (4)
  1. LAMICTAL [Suspect]
     Active Substance: LAMOTRIGINE
     Indication: PANIC ATTACK
  2. LAMICTAL [Suspect]
     Active Substance: LAMOTRIGINE
     Indication: ANXIETY
     Dosage: 200 MG, UNK (DISPERSIBLE TABLET)
     Route: 048
     Dates: start: 201907
  3. LAMICTAL [Suspect]
     Active Substance: LAMOTRIGINE
     Indication: ANXIETY
     Dosage: 50 MG, UNK
     Route: 048
  4. LAMICTAL [Suspect]
     Active Substance: LAMOTRIGINE
     Indication: PANIC ATTACK

REACTIONS (12)
  - Dysstasia [Unknown]
  - Prescribed overdose [Unknown]
  - Confusional state [Unknown]
  - Nausea [Unknown]
  - Visual impairment [Unknown]
  - Malaise [Unknown]
  - Paraesthesia [Unknown]
  - Heart rate increased [Unknown]
  - Headache [Unknown]
  - Vision blurred [Unknown]
  - Gait inability [Unknown]
  - Dizziness [Unknown]

NARRATIVE: CASE EVENT DATE: 20190711
